FAERS Safety Report 21211895 (Version 1)
Quarter: 2022Q3

REPORT INFORMATION
  Report Type: Spontaneous
  Country: US (occurrence: None)
  Receive Date: 20220812
  Receipt Date: 20220812
  Transmission Date: 20221027
  Serious: Yes (Disabling)
  Sender: FDA-Public Use
  Company Number: None

PATIENT
  Age: 26 Year
  Sex: Male
  Weight: 54.9 kg

DRUGS (1)
  1. FINASTERIDE [Suspect]
     Active Substance: FINASTERIDE
     Indication: Androgenetic alopecia
     Dosage: FREQUENCY : DAILY;?
     Route: 048
     Dates: start: 20180201, end: 20200228

REACTIONS (8)
  - Erectile dysfunction [None]
  - Testicular pain [None]
  - Testicular atrophy [None]
  - Male genital atrophy [None]
  - Organic erectile dysfunction [None]
  - Orgasmic sensation decreased [None]
  - Libido decreased [None]
  - Fibrosis [None]

NARRATIVE: CASE EVENT DATE: 20200228
